FAERS Safety Report 10045098 (Version 2)
Quarter: 2014Q2

REPORT INFORMATION
  Report Type: Spontaneous
  Country: US (occurrence: US)
  Receive Date: 20140328
  Receipt Date: 20140529
  Transmission Date: 20141212
  Serious: No
  Sender: FDA-Public Use
  Company Number: US-009507513-1403USA006666

PATIENT
  Age: 72 Year
  Sex: Female
  Weight: 39.68 kg

DRUGS (11)
  1. MIRALAX [Suspect]
     Indication: CONSTIPATION
     Dosage: 4.25 G, QAM
     Route: 048
     Dates: start: 201306
  2. MIRALAX [Suspect]
     Dosage: 8.5 G, ONCE
     Route: 048
     Dates: start: 20140301
  3. MIRALAX [Suspect]
     Dosage: 17 G, UNK
     Route: 048
     Dates: start: 201403
  4. ATORVASTATIN [Concomitant]
     Indication: BLOOD CHOLESTEROL INCREASED
     Dosage: 20 MG, QD
  5. METOPROLOL [Concomitant]
     Indication: BLOOD CHOLESTEROL INCREASED
     Dosage: 25 MG, QD
  6. BONIVA [Concomitant]
     Indication: OSTEOPOROSIS
     Dosage: Q3MONTHS
  7. VITAMIN D (UNSPECIFIED) [Concomitant]
     Indication: OSTEOPOROSIS
     Dosage: UNK, UNKNOWN
  8. ASPIRIN [Concomitant]
     Indication: PRODUCT USED FOR UNKNOWN INDICATION
     Dosage: UNK, QD
  9. OMEGA-3 MARINE TRIGLYCERIDES [Concomitant]
     Indication: PRODUCT USED FOR UNKNOWN INDICATION
     Dosage: 2400 MG, UNKNOWN
  10. UBIDECARENONE [Concomitant]
     Indication: PRODUCT USED FOR UNKNOWN INDICATION
     Dosage: 200 MG, QD
  11. CALCIUM (UNSPECIFIED) [Concomitant]
     Indication: PRODUCT USED FOR UNKNOWN INDICATION
     Dosage: UNK, BID

REACTIONS (5)
  - Malaise [Unknown]
  - Vomiting [Unknown]
  - Underdose [Unknown]
  - Product odour abnormal [Unknown]
  - Incorrect drug administration duration [Unknown]
